FAERS Safety Report 15831027 (Version 2)
Quarter: 2019Q1

REPORT INFORMATION
  Report Type: Spontaneous
  Country: RU (occurrence: RU)
  Receive Date: 20190116
  Receipt Date: 20190118
  Transmission Date: 20190417
  Serious: Yes (Hospitalization, Disabling)
  Sender: FDA-Public Use
  Company Number: RU-ROCHE-2240908

PATIENT
  Age: 48 Year
  Sex: Male

DRUGS (2)
  1. OCREVUS [Suspect]
     Active Substance: OCRELIZUMAB
     Indication: PRIMARY PROGRESSIVE MULTIPLE SCLEROSIS
     Route: 042
     Dates: start: 20181207
  2. OCREVUS [Suspect]
     Active Substance: OCRELIZUMAB
     Route: 042
     Dates: start: 20181221

REACTIONS (4)
  - Hypokinesia [Recovering/Resolving]
  - General physical health deterioration [Recovering/Resolving]
  - Gait disturbance [Recovering/Resolving]
  - Drug ineffective [Unknown]
